FAERS Safety Report 5848220-3 (Version None)
Quarter: 2008Q3

REPORT INFORMATION
  Report Type: 
  Country: None (occurrence: None)
  Receive Date: 20080818
  Receipt Date: 20080808
  Transmission Date: 20090109
  Serious: Yes (Other)
  Sender: FDA-Public Use
  Company Number: B0533432A

PATIENT

DRUGS (1)
  1. AVAMYS [Suspect]
     Indication: DRUG USE FOR UNKNOWN INDICATION
     Dosage: 27.5UG TWICE PER DAY
     Route: 045

REACTIONS (2)
  - AGEUSIA [None]
  - ANOSMIA [None]
